FAERS Safety Report 17183641 (Version 3)
Quarter: 2020Q1

REPORT INFORMATION
  Report Type: Spontaneous
  Country: US (occurrence: US)
  Receive Date: 20191220
  Receipt Date: 20200213
  Transmission Date: 20200409
  Serious: Yes (Other)
  Sender: FDA-Public Use
  Company Number: US-PFIZER INC-2019550540

PATIENT
  Age: 70 Year
  Sex: Female
  Weight: 90.7 kg

DRUGS (1)
  1. PREMARIN [Suspect]
     Active Substance: ESTROGENS, CONJUGATED
     Indication: BLADDER DISORDER
     Dosage: 0.5 G, 2X/WEEK
     Route: 067
     Dates: start: 201912

REACTIONS (4)
  - Off label use [Unknown]
  - Night blindness [Unknown]
  - Cataract [Unknown]
  - Product use in unapproved indication [Unknown]

NARRATIVE: CASE EVENT DATE: 201912
